FAERS Safety Report 4393408-4 (Version None)
Quarter: 2004Q3

REPORT INFORMATION
  Report Type: 
  Country: None (occurrence: None)
  Receive Date: 20040709
  Receipt Date: 20040628
  Transmission Date: 20050211
  Serious: Yes (Other)
  Sender: FDA-Public Use
  Company Number: US-BRISTOL-MYERS SQUIBB COMPANY-12633046

PATIENT
  Age: 66 Year
  Sex: Male

DRUGS (3)
  1. STAVUDINE [Suspect]
     Indication: HIV INFECTION
  2. DIDANOSINE [Suspect]
     Indication: HIV INFECTION
  3. INDINAVIR SULFATE [Suspect]
     Indication: HIV INFECTION

REACTIONS (10)
  - AREFLEXIA [None]
  - BLOOD LACTIC ACID INCREASED [None]
  - FACIAL WASTING [None]
  - FAT ATROPHY [None]
  - HEPATOMEGALY [None]
  - MUSCULAR WEAKNESS [None]
  - NAUSEA [None]
  - POLYNEUROPATHY [None]
  - VOMITING [None]
  - WEIGHT DECREASED [None]
